FAERS Safety Report 5750861-9 (Version None)
Quarter: 2008Q2

REPORT INFORMATION
  Report Type: 
  Country: None (occurrence: None)
  Receive Date: 20080528
  Receipt Date: 20080527
  Transmission Date: 20081010
  Serious: Yes (Life-Threatening)
  Sender: FDA-Public Use
  Company Number: D0057440A

PATIENT
  Age: 39 Year
  Sex: Male

DRUGS (1)
  1. LAMOTRIGINE (HEXAL AG) [Suspect]
     Indication: EPILEPSY
     Dosage: 100MG UNKNOWN
     Route: 048
     Dates: start: 20080306

REACTIONS (1)
  - GLIOBLASTOMA [None]
